FAERS Safety Report 7575380-9 (Version None)
Quarter: 2011Q2

REPORT INFORMATION
  Report Type: 
  Country: None (occurrence: None)
  Receive Date: 20110627
  Receipt Date: 20110621
  Transmission Date: 20111010
  Serious: Yes (Hospitalization, Other)
  Sender: FDA-Public Use
  Company Number: JP-ABBOTT-11P-087-0721945-00

PATIENT
  Sex: Female
  Weight: 62 kg

DRUGS (15)
  1. METHYCOBAL [Concomitant]
     Indication: DISEASE COMPLICATION
     Dates: start: 20100218
  2. BEPOTASTINE BESILATE [Concomitant]
     Indication: PRODUCT USED FOR UNKNOWN INDICATION
     Dosage: DAILY DOSE: 20MG
     Dates: start: 20100504
  3. FOLIC ACID [Concomitant]
     Indication: ADVERSE DRUG REACTION
     Dates: start: 20100218
  4. HUMIRA [Suspect]
     Indication: RHEUMATOID ARTHRITIS
     Dates: start: 20100218, end: 20101210
  5. GOKUMISIN [Concomitant]
     Indication: DISEASE COMPLICATION
     Dates: start: 20100506
  6. URSODIOL [Concomitant]
     Indication: PRODUCT USED FOR UNKNOWN INDICATION
     Dosage: DAILY DOSE: 50MG
     Dates: start: 20100506
  7. METHOTREXATE [Suspect]
     Indication: RHEUMATOID ARTHRITIS
     Dates: start: 20100218
  8. TACROLIMUS [Suspect]
     Indication: RHEUMATOID ARTHRITIS
     Dosage: DAILY DOSE: 3MG
     Dates: start: 20100218
  9. OPALMON [Concomitant]
     Indication: DISEASE COMPLICATION
     Dates: start: 20100218
  10. D ALFA [Concomitant]
     Indication: OSTEOPOROSIS PROPHYLAXIS
     Dates: start: 20100218
  11. FOLIC ACID [Concomitant]
     Indication: PRODUCT USED FOR UNKNOWN INDICATION
  12. FOLIC ACID [Concomitant]
     Indication: PROPHYLAXIS
  13. LIMAPROST ALFADEX [Concomitant]
     Indication: PRODUCT USED FOR UNKNOWN INDICATION
     Dosage: DAILY DOSE: 5MCG
  14. MECOBALAMIN [Concomitant]
     Indication: PRODUCT USED FOR UNKNOWN INDICATION
     Dosage: DAILY DOSE: 1500MCG
  15. ALFACALCIDOL [Concomitant]
     Indication: PRODUCT USED FOR UNKNOWN INDICATION
     Dosage: DAILY DOSE: 0.5MCG

REACTIONS (2)
  - COMPUTERISED TOMOGRAM THORAX ABNORMAL [None]
  - LUNG NEOPLASM MALIGNANT [None]
